FAERS Safety Report 14296534 (Version 1)
Quarter: 2017Q4

REPORT INFORMATION
  Report Type: Spontaneous
  Country: US (occurrence: US)
  Receive Date: 20171218
  Receipt Date: 20171218
  Transmission Date: 20180321
  Serious: Yes (Other)
  Sender: FDA-Public Use
  Company Number: US-JNJFOC-20171219731

PATIENT
  Sex: Female
  Weight: 52.15 kg

DRUGS (9)
  1. ASPIRIN. [Concomitant]
     Active Substance: ASPIRIN
  2. LORAZEPAM. [Concomitant]
     Active Substance: LORAZEPAM
  3. SPIRONOLACTONE. [Concomitant]
     Active Substance: SPIRONOLACTONE
  4. BROMPHENIRAMINE MALEATE. [Concomitant]
     Active Substance: BROMPHENIRAMINE MALEATE
  5. CARVEDILOL. [Concomitant]
     Active Substance: CARVEDILOL
  6. CITALOPRAM [Concomitant]
     Active Substance: CITALOPRAM HYDROBROMIDE
  7. LISINOPRIL. [Concomitant]
     Active Substance: LISINOPRIL
  8. PROTONIX [Concomitant]
     Active Substance: PANTOPRAZOLE SODIUM
  9. IMBRUVICA [Suspect]
     Active Substance: IBRUTINIB
     Indication: CHRONIC LYMPHOCYTIC LEUKAEMIA
     Route: 048
     Dates: start: 20160929, end: 201711

REACTIONS (1)
  - Cardiac disorder [Unknown]
